FAERS Safety Report 8841960 (Version 1)
Quarter: 2012Q4

REPORT INFORMATION
  Report Type: Spontaneous
  Country: US (occurrence: None)
  Receive Date: 20121015
  Receipt Date: 20121015
  Transmission Date: 20130627
  Serious: Yes (Other)
  Sender: FDA-Public Use
  Company Number: None

PATIENT

DRUGS (2)
  1. RECLAST [Suspect]
     Indication: OSTEOPENIA
     Dosage: 5mg/100ml infusion 1q year IV infusion
     Route: 042
     Dates: start: 201203
  2. RECLAST [Suspect]
     Indication: OSTEOPENIA
     Dates: start: 20120608

REACTIONS (6)
  - Gingival pain [None]
  - Tooth disorder [None]
  - Dysgeusia [None]
  - Dysgeusia [None]
  - Dysgeusia [None]
  - Hyperhidrosis [None]
